FAERS Safety Report 16462177 (Version 1)
Quarter: 2019Q2

REPORT INFORMATION
  Report Type: Spontaneous
  Country: TR (occurrence: TR)
  Receive Date: 20190621
  Receipt Date: 20190621
  Transmission Date: 20190711
  Serious: Yes (Hospitalization)
  Sender: FDA-Public Use
  Company Number: PHHY2019TR138800

PATIENT
  Age: 25 Year
  Sex: Female

DRUGS (1)
  1. METHOTREXATE. [Suspect]
     Active Substance: METHOTREXATE
     Indication: BEHCET^S SYNDROME
     Route: 065

REACTIONS (7)
  - Lymphadenopathy [Unknown]
  - Papilloedema [Unknown]
  - Product use in unapproved indication [Unknown]
  - Granulomatous lymphadenitis [Unknown]
  - Tuberculosis of eye [Unknown]
  - Pulmonary tuberculosis [Unknown]
  - Lymphadenopathy mediastinal [Unknown]
